FAERS Safety Report 10655042 (Version 1)
Quarter: 2014Q4

REPORT INFORMATION
  Report Type: Spontaneous
  Country: HR (occurrence: HR)
  Receive Date: 20141216
  Receipt Date: 20141216
  Transmission Date: 20150529
  Serious: Yes (Hospitalization, Other)
  Sender: FDA-Public Use
  Company Number: HR-BAYER-2014-181951

PATIENT
  Age: 29 Year
  Sex: Female

DRUGS (1)
  1. MIRENA [Suspect]
     Active Substance: LEVONORGESTREL
     Dosage: UNK
     Dates: start: 201310

REACTIONS (9)
  - Menstruation delayed [None]
  - Abdominal pain lower [None]
  - Ruptured ectopic pregnancy [None]
  - Vomiting [None]
  - Drug ineffective [None]
  - Abdominal tenderness [None]
  - Ectopic pregnancy with contraceptive device [None]
  - Diarrhoea [None]
  - Procedural haemorrhage [None]

NARRATIVE: CASE EVENT DATE: 201411
